FAERS Safety Report 15644884 (Version 2)
Quarter: 2019Q1

REPORT INFORMATION
  Report Type: Report from Study
  Country: None (occurrence: BR)
  Receive Date: 20181121
  Receipt Date: 20190216
  Transmission Date: 20190417
  Serious: Yes (Hospitalization, Other)
  Sender: FDA-Public Use
  Company Number: BR-ABBVIE-18K-020-2559641-00

PATIENT
  Sex: Female
  Weight: 55 kg

DRUGS (1)
  1. HUMIRA [Suspect]
     Active Substance: ADALIMUMAB
     Indication: PSORIATIC ARTHROPATHY
     Route: 058
     Dates: start: 20180718

REACTIONS (4)
  - Respiratory disorder [Unknown]
  - Nasal septum deviation [Unknown]
  - Procedural pain [Not Recovered/Not Resolved]
  - Tonsillitis [Unknown]
